FAERS Safety Report 11819550 (Version 1)
Quarter: 2015Q4

REPORT INFORMATION
  Report Type: Spontaneous
  Country: US (occurrence: None)
  Receive Date: 20151209
  Receipt Date: 20151209
  Transmission Date: 20160305
  Serious: Yes (Hospitalization)
  Sender: FDA-Public Use
  Company Number: None

PATIENT
  Age: 75 Year
  Sex: Female
  Weight: 68.5 kg

DRUGS (9)
  1. VITAMIN B12 [Concomitant]
     Active Substance: CYANOCOBALAMIN
  2. KLONOPIN [Concomitant]
     Active Substance: CLONAZEPAM
  3. APAP [Concomitant]
     Active Substance: ACETAMINOPHEN
  4. AMLODIPINE [Concomitant]
     Active Substance: AMLODIPINE BESYLATE
  5. SYNTHROID [Concomitant]
     Active Substance: LEVOTHYROXINE SODIUM
  6. LITHIUM. [Concomitant]
     Active Substance: LITHIUM
  7. DRISDOL [Concomitant]
     Active Substance: ERGOCALCIFEROL
  8. VITAMIN D2 [Concomitant]
     Active Substance: ERGOCALCIFEROL
  9. CARBAMEZAPINE [Suspect]
     Active Substance: CARBAMAZEPINE
     Indication: BIPOLAR DISORDER
     Dosage: 200MG  TID PO?CHRONIC
     Route: 048

REACTIONS (3)
  - Ataxia [None]
  - Toxicity to various agents [None]
  - Fall [None]

NARRATIVE: CASE EVENT DATE: 20150725
